FAERS Safety Report 6731795-X (Version None)
Quarter: 2010Q2

REPORT INFORMATION
  Report Type: 
  Country: None (occurrence: None)
  Receive Date: 20100519
  Receipt Date: 20100510
  Transmission Date: 20101027
  Serious: Yes (Hospitalization, Other)
  Sender: FDA-Public Use
  Company Number: US-PFIZER INC-2010059522

PATIENT
  Sex: Male
  Weight: 72.56 kg

DRUGS (3)
  1. LIPITOR [Suspect]
     Indication: BLOOD CHOLESTEROL INCREASED
     Dosage: 20 MG, UNK
     Route: 048
     Dates: start: 20100101
  2. PLAVIX [Concomitant]
     Dosage: 75 MG, UNK
     Route: 048
     Dates: start: 20100401
  3. ACETYLSALICYLIC ACID [Concomitant]
     Dosage: 81 MG, UNK
     Dates: end: 20100101

REACTIONS (2)
  - CORONARY ARTERIAL STENT INSERTION [None]
  - MUSCULAR WEAKNESS [None]
